FAERS Safety Report 9219640 (Version 1)
Quarter: 2013Q2

REPORT INFORMATION
  Report Type: Spontaneous
  Country: US (occurrence: US)
  Receive Date: 20130409
  Receipt Date: 20130409
  Transmission Date: 20140414
  Serious: No
  Sender: FDA-Public Use
  Company Number: US-009507513-1304USA003688

PATIENT
  Age: 64 Year
  Sex: Female

DRUGS (2)
  1. ZETIA [Suspect]
     Indication: BLOOD CHOLESTEROL INCREASED
     Dosage: 10 MG, QD
     Route: 048
     Dates: start: 20130328, end: 20130402
  2. [THERAPY UNSPECIFIED] [Concomitant]
     Dosage: UNK

REACTIONS (1)
  - Diarrhoea [Recovered/Resolved]
